FAERS Safety Report 20830169 (Version 8)
Quarter: 2022Q3

REPORT INFORMATION
  Report Type: Report from Study
  Country: US (occurrence: None)
  Receive Date: 20220514
  Receipt Date: 20220921
  Transmission Date: 20221026
  Serious: Yes (Life-Threatening, Hospitalization)
  Sender: FDA-Public Use
  Company Number: US-ROCHE-3064323

PATIENT
  Age: 63 Year
  Sex: Male
  Weight: 80.4 kg

DRUGS (25)
  1. IPATASERTIB [Suspect]
     Active Substance: IPATASERTIB
     Indication: Neoplasm
     Dosage: ON 22/FEB/2022, MOST RECENT DOSE OF STUDY DUG PRIOR TO AE.?ON 27/FEB/2022, MOST RECENT DOSE OF STUDY
     Route: 048
     Dates: start: 20220104
  2. ATEZOLIZUMAB [Suspect]
     Active Substance: ATEZOLIZUMAB
     Indication: Neoplasm
     Dosage: DOSE LAST STUDY DRUG ADMIN PRIOR AE/SAE: 1200 MG.?ON 14/FEB/2022, MOST RECENT DOSE OF STUDY DRUG PRI
     Route: 041
     Dates: start: 20220104
  3. ACETAMINOPHEN [Concomitant]
     Active Substance: ACETAMINOPHEN
     Indication: Pain
     Route: 048
     Dates: start: 20200101
  4. IBUPROFEN [Concomitant]
     Active Substance: IBUPROFEN
     Indication: Pain
     Route: 048
     Dates: start: 20200101
  5. LOPERAMIDE [Concomitant]
     Active Substance: LOPERAMIDE
     Indication: Diarrhoea
     Route: 048
     Dates: start: 20220104
  6. CETIRIZINE [Concomitant]
     Active Substance: CETIRIZINE HYDROCHLORIDE
     Indication: Prophylaxis
     Route: 048
     Dates: start: 20220104
  7. PREDNISONE [Concomitant]
     Active Substance: PREDNISONE
     Indication: Abdominal pain
     Route: 048
     Dates: start: 20220125, end: 20220202
  8. PREDNISONE [Concomitant]
     Active Substance: PREDNISONE
     Indication: Pneumonitis
     Route: 048
     Dates: start: 20220203, end: 20220207
  9. PREDNISONE [Concomitant]
     Active Substance: PREDNISONE
     Route: 048
     Dates: start: 20220211, end: 20220214
  10. PREDNISONE [Concomitant]
     Active Substance: PREDNISONE
     Route: 048
     Dates: start: 20220331
  11. PREDNISONE [Concomitant]
     Active Substance: PREDNISONE
     Route: 048
     Dates: start: 20220208, end: 20220210
  12. SODIUM CHLORIDE [Concomitant]
     Active Substance: SODIUM CHLORIDE
     Indication: Dehydration
     Route: 042
     Dates: start: 20220319, end: 20220319
  13. SODIUM CHLORIDE [Concomitant]
     Active Substance: SODIUM CHLORIDE
     Route: 042
     Dates: start: 20220328, end: 20220328
  14. KEFLEX [Concomitant]
     Active Substance: CEPHALEXIN
     Indication: Pyrexia
     Route: 048
     Dates: start: 20220310, end: 20220314
  15. ZOFRAN [Concomitant]
     Active Substance: ONDANSETRON HYDROCHLORIDE
     Indication: Nausea
     Route: 048
     Dates: start: 20220328, end: 20220328
  16. ROCEPHIN [Concomitant]
     Active Substance: CEFTRIAXONE SODIUM
     Indication: Abdominal abscess
     Route: 042
     Dates: start: 20220328, end: 20220331
  17. AUGMENTIN [Concomitant]
     Active Substance: AMOXICILLIN\CLAVULANATE POTASSIUM
     Indication: Abdominal abscess
     Dosage: STRENGTH: 875-125 MG
     Route: 048
     Dates: start: 20220331, end: 20220406
  18. METHYLPREDNISOLONE [Concomitant]
     Active Substance: METHYLPREDNISOLONE
     Indication: Pneumonitis
     Route: 042
     Dates: start: 20220328, end: 20220331
  19. OXYGEN [Concomitant]
     Active Substance: OXYGEN
     Indication: Pneumonitis
     Route: 045
     Dates: start: 20220328, end: 20220329
  20. OXYGEN [Concomitant]
     Active Substance: OXYGEN
     Dates: start: 20220330, end: 20220330
  21. OXYGEN [Concomitant]
     Active Substance: OXYGEN
     Dates: start: 20220330, end: 20220331
  22. ENOXAPARIN [Concomitant]
     Active Substance: ENOXAPARIN
     Indication: Thrombosis prophylaxis
     Route: 058
     Dates: start: 20220329, end: 20220330
  23. MELATONIN [Concomitant]
     Active Substance: MELATONIN
     Indication: Insomnia
     Route: 048
     Dates: start: 20220329, end: 20220330
  24. TUMS [Concomitant]
     Active Substance: CALCIUM CARBONATE
     Indication: Dyspepsia
     Route: 048
     Dates: start: 20220330, end: 20220330
  25. AFATINIB [Concomitant]
     Active Substance: AFATINIB
     Indication: Neoplasm malignant
     Dates: start: 20220816

REACTIONS (2)
  - Upper respiratory tract infection [Not Recovered/Not Resolved]
  - Abscess intestinal [Recovered/Resolved]

NARRATIVE: CASE EVENT DATE: 20220222
